FAERS Safety Report 9912720 (Version 1)
Quarter: 2014Q1

REPORT INFORMATION
  Report Type: Spontaneous
  Country: US (occurrence: None)
  Receive Date: 20140218
  Receipt Date: 20140218
  Transmission Date: 20141002
  Serious: Yes (Other)
  Sender: FDA-Public Use
  Company Number: None

PATIENT
  Age: 23 Year
  Sex: Female
  Weight: 56.7 kg

DRUGS (1)
  1. EFFEXOR XR [Suspect]
     Indication: DEPRESSION
     Dosage: TAKEN BY MOUTH

REACTIONS (7)
  - Amnesia [None]
  - Paraesthesia [None]
  - Hypoaesthesia [None]
  - Disturbance in attention [None]
  - Speech disorder [None]
  - Dysphemia [None]
  - Dysphemia [None]
